FAERS Safety Report 20126880 (Version 1)
Quarter: 2021Q4

REPORT INFORMATION
  Report Type: Spontaneous
  Country: US (occurrence: None)
  Receive Date: 20211129
  Receipt Date: 20211129
  Transmission Date: 20220303
  Serious: Yes (Hospitalization)
  Sender: FDA-Public Use
  Company Number: None

PATIENT
  Age: 59 Year
  Sex: Male
  Weight: 71 kg

DRUGS (3)
  1. LISINOPRIL [Suspect]
     Active Substance: LISINOPRIL
     Indication: Renal disorder prophylaxis
     Dosage: FREQUENCY : DAILY;?
     Route: 048
     Dates: start: 20070911, end: 20210902
  2. LISINOPRIL [Suspect]
     Active Substance: LISINOPRIL
     Indication: Albumin urine present
  3. LISINOPRIL [Suspect]
     Active Substance: LISINOPRIL
     Indication: Diabetes mellitus

REACTIONS (2)
  - Swelling face [None]
  - Angioedema [None]

NARRATIVE: CASE EVENT DATE: 20210902
